FAERS Safety Report 9214928 (Version 1)
Quarter: 2013Q2

REPORT INFORMATION
  Report Type: Report from Study
  Country: CA (occurrence: CA)
  Receive Date: 20130405
  Receipt Date: 20130405
  Transmission Date: 20140414
  Serious: Yes (Hospitalization)
  Sender: FDA-Public Use
  Company Number: CA-AMGEN-US265256

PATIENT
  Age: 56 Year
  Sex: Male

DRUGS (6)
  1. DENOSUMAB [Suspect]
     Indication: PROSTATE CANCER
     Dosage: UNK UNK, Q4WK
     Route: 058
     Dates: start: 20060831
  2. TAMSULOSIN HCL [Concomitant]
  3. LEUPRORELIN ACETATE [Concomitant]
  4. CALCIUM [Concomitant]
  5. ERGOCALCIFEROL [Concomitant]
  6. NAPROXEN [Concomitant]

REACTIONS (1)
  - Atrial fibrillation [Recovered/Resolved]
